FAERS Safety Report 10542951 (Version 12)
Quarter: 2016Q2

REPORT INFORMATION
  Report Type: Report from Study
  Country: JP (occurrence: JP)
  Receive Date: 20141027
  Receipt Date: 20160404
  Transmission Date: 20160815
  Serious: Yes (Hospitalization, Other)
  Sender: FDA-Public Use
  Company Number: JP-UCBSA-2014014586

PATIENT
  Age: 39 Year
  Sex: Female
  Weight: 43.5 kg

DRUGS (19)
  1. LACOSAMIDE EP [Suspect]
     Active Substance: LACOSAMIDE
     Dosage: 150 MG, 2X/DAY (BID)
     Route: 048
     Dates: start: 20140304, end: 20140318
  2. LACOSAMIDE EP [Suspect]
     Active Substance: LACOSAMIDE
     Dosage: 100 MG, 2X/DAY (BID)
     Route: 048
     Dates: start: 20140319, end: 20141008
  3. LACOSAMIDE EP [Suspect]
     Active Substance: LACOSAMIDE
     Dosage: 100 MG, 2X/DAY (BID)
     Route: 048
     Dates: start: 20141112, end: 20141209
  4. MYSTAN [Concomitant]
     Active Substance: CLOBAZAM
     Indication: EPILEPSY
     Dosage: 10 MG, 2X/DAY (BID)
     Route: 048
     Dates: start: 20130515, end: 20151201
  5. CEREKINON [Concomitant]
     Active Substance: TRIMEBUTINE
     Indication: DYSPEPSIA
  6. TOPINA [Concomitant]
     Active Substance: TOPIRAMATE
     Dosage: 100 MG, 2X/DAY (BID)
     Route: 048
     Dates: start: 20151102
  7. INTENURSE [Concomitant]
     Indication: LIGAMENT SPRAIN
     Dosage: UNK, AS NEEDED (PRN)
     Dates: start: 20150824
  8. LACOSAMIDE EP [Suspect]
     Active Substance: LACOSAMIDE
     Dosage: 100 MG, 2X/DAY (BID)
     Route: 048
     Dates: start: 20150417
  9. FOLIAMIN [Concomitant]
     Active Substance: FOLIC ACID
     Indication: ANAEMIA
     Dosage: 5 MG, ONCE DAILY (QD)
     Route: 048
     Dates: start: 20141103
  10. BUFFERIN [Concomitant]
     Active Substance: ASPIRIN
     Indication: HEADACHE
     Dosage: UNK, AS NEEDED (PRN)
     Route: 048
     Dates: start: 20150430
  11. DEPAKENE [Concomitant]
     Active Substance: VALPROIC ACID
     Indication: EPILEPSY
     Dosage: 400 MG, 2X/DAY (BID)
     Route: 048
     Dates: start: 20130515
  12. TOPINA [Concomitant]
     Active Substance: TOPIRAMATE
     Indication: EPILEPSY
     Dosage: 100 MG, 3X/DAY (TID)
     Route: 048
     Dates: start: 20130916, end: 20151101
  13. LEUCON [Concomitant]
     Indication: ANAEMIA
     Dosage: 20 MG, 3X/DAY (TID)
     Route: 048
     Dates: start: 20130822
  14. LACOSAMIDE EP [Suspect]
     Active Substance: LACOSAMIDE
     Indication: EPILEPSY
     Dosage: 100 MG, 2X/DAY (BID)
     Route: 048
     Dates: start: 20131213, end: 20140303
  15. LACOSAMIDE EP [Suspect]
     Active Substance: LACOSAMIDE
     Dosage: 150 MG, 2X/DAY (BID)
     Route: 048
     Dates: start: 20141210, end: 20150416
  16. MIYA-BM [Concomitant]
     Active Substance: CLOSTRIDIUM BUTYRICUM SPORES STRAIN M-55
     Indication: CONSTIPATION PROPHYLAXIS
     Dosage: 1 G, 3X/DAY (TID)
     Route: 048
     Dates: end: 20151021
  17. LACOSAMIDE EP [Suspect]
     Active Substance: LACOSAMIDE
     Dosage: 50 MG, 2X/DAY (BID)
     Route: 048
     Dates: start: 20141009, end: 20141111
  18. VITAMEDIN [Concomitant]
     Active Substance: CYANOCOBALAMIN\PYRIDOXINE HYDROCHLORIDE\THIAMINE
     Indication: ANAEMIA
     Dosage: 1 DF, 3X/DAY (TID)
     Route: 048
     Dates: start: 20130917, end: 20151119
  19. CEREKINON [Concomitant]
     Active Substance: TRIMEBUTINE
     Indication: CHRONIC GASTRITIS
     Dosage: 100 MG, 3X/DAY (TID)
     Route: 048
     Dates: start: 20150430

REACTIONS (4)
  - Headache [Recovered/Resolved]
  - Dyspepsia [Recovered/Resolved]
  - Decreased appetite [Recovered/Resolved]
  - Suicidal ideation [Recovered/Resolved]

NARRATIVE: CASE EVENT DATE: 20141001
